FAERS Safety Report 10761171 (Version 4)
Quarter: 2015Q2

REPORT INFORMATION
  Report Type: Spontaneous
  Country: US (occurrence: US)
  Receive Date: 20150204
  Receipt Date: 20150619
  Transmission Date: 20150821
  Serious: Yes (Hospitalization)
  Sender: FDA-Public Use
  Company Number: US-PFIZER INC-2015039551

PATIENT
  Age: 77 Year
  Sex: Female
  Weight: 52.15 kg

DRUGS (21)
  1. BOSULIF [Suspect]
     Active Substance: BOSUTINIB MONOHYDRATE
     Dosage: 200 MG, DAILY (2 TABLETS OF 100MG A DAY)
     Route: 048
  2. DIPHENOXYLATE HCL AND ATROPINE SULFATE [Concomitant]
     Active Substance: ATROPINE SULFATE\DIPHENOXYLATE HYDROCHLORIDE
     Dosage: 2.5/0.025MG 4 TIMES DAILY AS NEEDED
     Route: 048
  3. POTASSIUM CHLORIDE. [Concomitant]
     Active Substance: POTASSIUM CHLORIDE
     Dosage: UNK DAILY, (TAKE 0.5 OF 2.5MEQ DAILY)
     Route: 048
  4. TUMS [Concomitant]
     Active Substance: CALCIUM CARBONATE
     Dosage: UNK
  5. TRAMADOL HCL [Concomitant]
     Active Substance: TRAMADOL HYDROCHLORIDE
     Dosage: 50 MG, 2X/DAY
     Route: 048
  6. ALBUTEROL SULFATE. [Concomitant]
     Active Substance: ALBUTEROL SULFATE
     Dosage: 2.5 MG, UNK (AS DIRECTED)
  7. MSM + GLUCOSAMINE [Concomitant]
     Dosage: 500-333.3 TABLET(S) TAKE 1 PO DAILY
     Route: 048
  8. PHILLIPS^ COLON HEALTH [Concomitant]
     Active Substance: PROBIOTICS NOS
     Dosage: UNK, DAILY, 1.5B CELL CAPSULE(S) TAKE 1 PO DAILY
     Route: 048
  9. VITAMIN E [Concomitant]
     Active Substance: .ALPHA.-TOCOPHEROL
     Dosage: 400 IU, 2X/DAY
     Route: 048
  10. IRON [Concomitant]
     Active Substance: IRON
     Indication: IRON DEFICIENCY ANAEMIA
  11. MECLIZINE HCL [Concomitant]
     Active Substance: MECLIZINE HYDROCHLORIDE
     Dosage: 25 MG, 2X/DAY AS NEEDED
     Route: 048
  12. TUMS [Concomitant]
     Active Substance: CALCIUM CARBONATE
     Dosage: 200 MG (500), EVERY NIGHT
     Route: 048
  13. ASPIRIN. [Concomitant]
     Active Substance: ASPIRIN
     Dosage: 81 MG, DAILY
     Route: 048
  14. SINGULAIR [Concomitant]
     Active Substance: MONTELUKAST SODIUM
     Dosage: 10 MG, DAILY
     Route: 048
  15. BOSULIF [Suspect]
     Active Substance: BOSUTINIB MONOHYDRATE
     Indication: CHRONIC MYELOID LEUKAEMIA
     Dosage: 300MG, DAILY (3 TABLETS OF 100MG A DAY)
     Route: 048
     Dates: start: 20140625
  16. ALLEGRA [Concomitant]
     Active Substance: FEXOFENADINE HYDROCHLORIDE
     Dosage: 180 MG, DAILY,AS DIRECTED
     Route: 048
  17. FUROSEMIDE. [Concomitant]
     Active Substance: FUROSEMIDE
     Dosage: 40 MG, 1 TABLET AS DIRECTED
     Route: 048
  18. GLUCOSAMINE CHONDROITIN [Concomitant]
     Active Substance: CHONDROITIN SULFATE (BOVINE)\GLUCOSAMINE HYDROCHLORIDE
     Dosage: 500/400 MG CAPSULE(S) TAKE 1 PO AS DIRECTED
     Route: 048
  19. LANSOPRAZOLE. [Concomitant]
     Active Substance: LANSOPRAZOLE
     Dosage: 30 MG, DAILY
     Route: 048
     Dates: start: 2008
  20. PULMICORT FLEXHALER [Concomitant]
     Active Substance: BUDESONIDE
     Dosage: UNK UNK, 2X/DAY, TAKE 1 PUFFS INHALATION
     Route: 048
  21. VITAMIN C [Concomitant]
     Active Substance: ASCORBIC ACID
     Dosage: 500 MG, 2X/DAY
     Route: 048

REACTIONS (9)
  - Pain in extremity [Recovered/Resolved]
  - Hypoaesthesia [Recovered/Resolved]
  - Weight decreased [Not Recovered/Not Resolved]
  - Fatigue [Recovered/Resolved]
  - Drug intolerance [Recovered/Resolved]
  - Peripheral swelling [Recovered/Resolved]
  - Diarrhoea [Recovered/Resolved]
  - Lactose intolerance [Unknown]
  - Cough [Not Recovered/Not Resolved]
